FAERS Safety Report 18037744 (Version 1)
Quarter: 2020Q3

REPORT INFORMATION
  Report Type: Spontaneous
  Country: US (occurrence: US)
  Receive Date: 20200717
  Receipt Date: 20200717
  Transmission Date: 20201103
  Serious: No
  Sender: FDA-Public Use
  Company Number: US-BRISTOL-MYERS SQUIBB COMPANY-BMS-2020-055392

PATIENT
  Age: 13 Year
  Sex: Female
  Weight: 46.26 kg

DRUGS (2)
  1. ORENCIA [Suspect]
     Active Substance: ABATACEPT
     Indication: SCLERODERMA
     Dosage: 87.5 MILLIGRAM, QWK
     Route: 058
  2. ORENCIA [Suspect]
     Active Substance: ABATACEPT
     Indication: SCLERODERMA
     Dosage: 87.5 MILLIGRAM, QWK
     Route: 058

REACTIONS (2)
  - Intentional product use issue [Unknown]
  - Needle issue [Unknown]

NARRATIVE: CASE EVENT DATE: 20200709
